FAERS Safety Report 25945662 (Version 5)
Quarter: 2025Q4

REPORT INFORMATION
  Report Type: Report from Study
  Country: US (occurrence: None)
  Receive Date: 20251021
  Receipt Date: 20251218
  Transmission Date: 20260117
  Serious: Yes (Other)
  Sender: UCB
  Company Number: US-UCBSA-2025065021

PATIENT
  Age: 71 Year

DRUGS (2)
  1. BIMEKIZUMAB [Suspect]
     Active Substance: BIMEKIZUMAB
     Indication: Psoriasis
     Dosage: 320 MILLIGRAM, EV 4 WEEKS
  2. VERAPAMIL [Concomitant]
     Active Substance: VERAPAMIL HYDROCHLORIDE
     Indication: Hypertension
     Dosage: 120 MILLIGRAMS, DAILY

REACTIONS (9)
  - Hypertension [Recovering/Resolving]
  - Arterial rupture [Unknown]
  - Anxiety [Unknown]
  - Haemorrhage [Unknown]
  - Suture insertion [Unknown]
  - Blister [Recovered/Resolved]
  - Skin haemorrhage [Recovered/Resolved]
  - Vascular cauterisation [Recovered/Resolved]
  - Adverse drug reaction [Unknown]
